FAERS Safety Report 5789048-2 (Version None)
Quarter: 2008Q2

REPORT INFORMATION
  Report Type: 
  Country: None (occurrence: None)
  Receive Date: 20080626
  Receipt Date: 20080624
  Transmission Date: 20081010
  Serious: Yes (Hospitalization, Disabling)
  Sender: FDA-Public Use
  Company Number: B0524296A

PATIENT
  Age: 94 Year
  Sex: Female
  Weight: 45 kg

DRUGS (1)
  1. ARIXTRA [Suspect]
     Indication: DRUG USE FOR UNKNOWN INDICATION
     Dosage: 2.5MG PER DAY
     Route: 058
     Dates: start: 20080517, end: 20080523

REACTIONS (2)
  - ALTERED STATE OF CONSCIOUSNESS [None]
  - UNRESPONSIVE TO STIMULI [None]
